FAERS Safety Report 9929522 (Version 2)
Quarter: 2014Q1

REPORT INFORMATION
  Report Type: Report from Study
  Country: CA (occurrence: CA)
  Receive Date: 20140227
  Receipt Date: 20140307
  Transmission Date: 20141002
  Serious: Yes (Other)
  Sender: FDA-Public Use
  Company Number: PHHY2014CA022699

PATIENT
  Sex: Male

DRUGS (4)
  1. CLOZARIL [Suspect]
     Indication: SCHIZOPHRENIA, PARANOID TYPE
     Route: 048
     Dates: start: 20090612, end: 20131101
  2. MONOCYCLINE [Concomitant]
     Dosage: 100 MG
     Route: 048
  3. BUPROPION [Concomitant]
     Dosage: 150 MG, UNK
     Route: 048
  4. WELLBUTRIN [Concomitant]
     Dosage: 150 MG, QD

REACTIONS (5)
  - Bundle branch block right [Not Recovered/Not Resolved]
  - QRS axis abnormal [Not Recovered/Not Resolved]
  - Hallucination, visual [Unknown]
  - Sinus arrhythmia [Not Recovered/Not Resolved]
  - Tachycardia [Not Recovered/Not Resolved]
